FAERS Safety Report 25159916 (Version 1)
Quarter: 2025Q2

REPORT INFORMATION
  Report Type: Spontaneous
  Country: US (occurrence: None)
  Receive Date: 20250403
  Receipt Date: 20250403
  Transmission Date: 20250716
  Serious: Yes (Hospitalization)
  Sender: FDA-CTU
  Company Number: None

PATIENT
  Sex: Female

DRUGS (11)
  1. TERIFLUNOMIDE [Suspect]
     Active Substance: TERIFLUNOMIDE
     Indication: Multiple sclerosis
     Dosage: FREQUENCY : DAILY;?
     Route: 048
     Dates: start: 20240206
  2. BACLOFEN [Concomitant]
     Active Substance: BACLOFEN
  3. FERROUS SULF TAB 325MG [Concomitant]
  4. GNP VIT B-12 TAB 500MCG [Concomitant]
  5. LEXAPRO TAB 10MG [Concomitant]
  6. MULTI-VIT TAB [Concomitant]
  7. PREDNISONE [Concomitant]
     Active Substance: PREDNISONE
  8. TETRACYCLINE CAP 250MG [Concomitant]
  9. VITAMIN D3 CAP 1000UNIT [Concomitant]
  10. XARELTO TAB 2.5MG [Concomitant]
  11. ZANAFLEX TAB4MG [Concomitant]

REACTIONS (2)
  - Asthenia [None]
  - Therapy interrupted [None]
